FAERS Safety Report 20593053 (Version 1)
Quarter: 2022Q1

REPORT INFORMATION
  Report Type: Spontaneous
  Country: US (occurrence: None)
  Receive Date: 20220315
  Receipt Date: 20220315
  Transmission Date: 20220423
  Serious: No
  Sender: FDA-Public Use
  Company Number: US-ROCHE-2791136

PATIENT
  Sex: Female

DRUGS (15)
  1. XOLAIR [Suspect]
     Active Substance: OMALIZUMAB
     Indication: Idiopathic urticaria
     Dosage: 150 MG VIAL
     Route: 058
     Dates: start: 20161018
  2. CIPROFLOXACIN [Concomitant]
     Active Substance: CIPROFLOXACIN
  3. KEFLEX [Concomitant]
     Active Substance: CEPHALEXIN
  4. NEUROTIN (UNK INGREDIENTS) [Concomitant]
  5. RANEXA [Concomitant]
     Active Substance: RANOLAZINE
  6. ACYCLOVIR [Concomitant]
     Active Substance: ACYCLOVIR
  7. ALLOPURINOL [Concomitant]
     Active Substance: ALLOPURINOL
  8. AMOXICILLIN\CLAVULANATE POTASSIUM [Concomitant]
     Active Substance: AMOXICILLIN\CLAVULANATE POTASSIUM
  9. ATORVASTATIN [Concomitant]
     Active Substance: ATORVASTATIN
  10. CARISOPRODOL [Concomitant]
     Active Substance: CARISOPRODOL
  11. CARVEDILOL [Concomitant]
     Active Substance: CARVEDILOL
  12. CEPHALEXIN [Concomitant]
     Active Substance: CEPHALEXIN
  13. CETIRIZINE [Concomitant]
     Active Substance: CETIRIZINE HYDROCHLORIDE
  14. DIAZEPAM [Concomitant]
     Active Substance: DIAZEPAM
  15. WARFARIN [Concomitant]
     Active Substance: WARFARIN

REACTIONS (3)
  - Injection site mass [Not Recovered/Not Resolved]
  - Injection site swelling [Not Recovered/Not Resolved]
  - Injection site bruising [Not Recovered/Not Resolved]
